FAERS Safety Report 8487171-5 (Version None)
Quarter: 2012Q3

REPORT INFORMATION
  Report Type: 
  Country: None (occurrence: None)
  Receive Date: 20120704
  Receipt Date: 20120703
  Transmission Date: 20120928
  Serious: Yes (Other)
  Sender: FDA-Public Use
  Company Number: KR-ROCHE-1083627

PATIENT
  Age: 73 Year
  Sex: Female

DRUGS (1)
  1. BONIVA [Suspect]
     Indication: OSTEOPOROSIS
     Route: 048
     Dates: start: 20120620, end: 20120620

REACTIONS (4)
  - CHEST PAIN [None]
  - MELAENA [None]
  - DECREASED APPETITE [None]
  - ASTHENIA [None]
